FAERS Safety Report 4288534-4 (Version None)
Quarter: 2004Q1

REPORT INFORMATION
  Report Type: 
  Country: None (occurrence: None)
  Receive Date: 20040205
  Receipt Date: 20040123
  Transmission Date: 20041129
  Serious: No
  Sender: FDA-Public Use
  Company Number: 2004AP00529

PATIENT
  Age: 74 Year
  Sex: Male

DRUGS (9)
  1. IRESSA [Suspect]
     Indication: NON-SMALL CELL LUNG CANCER
     Dosage: 250 MG DILY PO
     Route: 048
     Dates: start: 20030916, end: 20030924
  2. IRESSA [Suspect]
     Indication: SQUAMOUS CELL CARCINOMA
     Dosage: 250 MG DILY PO
     Route: 048
     Dates: start: 20030916, end: 20030924
  3. PROTECADIN [Concomitant]
  4. MUCOSTA [Concomitant]
  5. CARBOPLATIN [Concomitant]
  6. PACLITAXEL [Concomitant]
  7. GEMCITABINE [Concomitant]
  8. VINORELBINE TARTRATE [Concomitant]
  9. RADIATION THERAPY [Concomitant]

REACTIONS (2)
  - PLEURAL EFFUSION [None]
  - PNEUMONIA [None]
